FAERS Safety Report 4744480-0 (Version None)
Quarter: 2005Q3

REPORT INFORMATION
  Report Type: 
  Country: None (occurrence: None)
  Receive Date: 20050809
  Receipt Date: 20050728
  Transmission Date: 20060218
  Serious: Yes (Other)
  Sender: FDA-Public Use
  Company Number: 2005107446

PATIENT
  Sex: Female
  Weight: 77.1115 kg

DRUGS (1)
  1. BENADRYL [Suspect]
     Indication: SINUS DISORDER
     Dosage: 1 ULTRATAB ONCE DAILY, ORAL
     Route: 048
     Dates: start: 20030101, end: 20030101

REACTIONS (4)
  - CHEST DISCOMFORT [None]
  - DIZZINESS [None]
  - DYSPNOEA [None]
  - SOMNOLENCE [None]
